FAERS Safety Report 24167762 (Version 1)
Quarter: 2024Q3

REPORT INFORMATION
  Report Type: Spontaneous
  Country: JP (occurrence: JP)
  Receive Date: 20240802
  Receipt Date: 20240802
  Transmission Date: 20241017
  Serious: Yes (Death, Hospitalization, Other)
  Sender: RK PHARMA
  Company Number: JP-RK PHARMA, INC-20240700037

PATIENT

DRUGS (1)
  1. METFORMIN HYDROCHLORIDE [Suspect]
     Active Substance: METFORMIN HYDROCHLORIDE
     Indication: Diabetes mellitus
     Dosage: 2 GRAM, QD
     Route: 048

REACTIONS (7)
  - Toxicity to various agents [Fatal]
  - Pulseless electrical activity [Fatal]
  - Distributive shock [Fatal]
  - Hypoxic-ischaemic encephalopathy [Fatal]
  - Circulatory collapse [Fatal]
  - Lactic acidosis [Fatal]
  - Overdose [Fatal]
